FAERS Safety Report 9040897 (Version 1)
Quarter: 2013Q1

REPORT INFORMATION
  Report Type: Report from Study
  Country: GB (occurrence: GB)
  Receive Date: 20130129
  Receipt Date: 20130129
  Transmission Date: 20140127
  Serious: Yes (Death)
  Sender: FDA-Public Use
  Company Number: GB-ABBOTT-13P-167-1041915-00

PATIENT
  Sex: Male
  Weight: 74 kg

DRUGS (1)
  1. HUMIRA [Suspect]
     Indication: PSORIASIS
     Route: 058
     Dates: start: 20090902

REACTIONS (4)
  - Cerebral haemorrhage [Fatal]
  - Cerebrovascular disorder [Fatal]
  - Hypertension [Fatal]
  - Bronchopneumonia [Fatal]
